FAERS Safety Report 7167030-0 (Version None)
Quarter: 2010Q4

REPORT INFORMATION
  Report Type: 
  Country: None (occurrence: None)
  Receive Date: 20101216
  Receipt Date: 20101209
  Transmission Date: 20110411
  Serious: Yes (Other)
  Sender: FDA-Public Use
  Company Number: B0682960A

PATIENT
  Age: 73 Year
  Sex: Male

DRUGS (5)
  1. ALLERMIST [Suspect]
     Indication: RHINITIS ALLERGIC
     Route: 045
     Dates: start: 20101027
  2. ZANTAC [Concomitant]
     Dosage: 1IUAX PER DAY
     Route: 048
     Dates: start: 19951019
  3. MEVALOTIN [Concomitant]
     Dosage: 1IUAX PER DAY
     Route: 048
     Dates: start: 20041130
  4. DIAZEPAM [Concomitant]
     Dosage: 1IUAX PER DAY
     Route: 048
     Dates: start: 20040413
  5. RHYTHMY [Concomitant]
     Dosage: 1IUAX PER DAY
     Route: 048
     Dates: start: 20090203

REACTIONS (3)
  - COLOUR BLINDNESS [None]
  - RHINORRHOEA [None]
  - VISUAL IMPAIRMENT [None]
